FAERS Safety Report 20860646 (Version 4)
Quarter: 2024Q4

REPORT INFORMATION
  Report Type: Report from Study
  Country: DE (occurrence: DE)
  Receive Date: 20220523
  Receipt Date: 20241218
  Transmission Date: 20250115
  Serious: No
  Sender: ROCHE
  Company Number: ROCHE-3094890

PATIENT
  Age: 49 Year
  Sex: Male

DRUGS (5)
  1. OCREVUS [Suspect]
     Active Substance: OCRELIZUMAB
     Indication: Relapsing-remitting multiple sclerosis
     Dosage: 186 DAYS? FREQUENCY TEXT:205 DAYS, 160 DAYS
     Route: 042
     Dates: start: 20210601
  2. OCREVUS [Suspect]
     Active Substance: OCRELIZUMAB
     Indication: Secondary progressive multiple sclerosis
  3. DALFAMPRIDINE [Concomitant]
     Active Substance: DALFAMPRIDINE
  4. VITAMIN C [Concomitant]
     Active Substance: ASCORBIC ACID
  5. MAGNESIUM [Concomitant]
     Active Substance: MAGNESIUM

REACTIONS (6)
  - COVID-19 [Recovered/Resolved]
  - Fatigue [Recovered/Resolved]
  - Fatigue [Recovered/Resolved]
  - Somnolence [Recovered/Resolved]
  - Headache [Recovered/Resolved]
  - Off label use [Unknown]

NARRATIVE: CASE EVENT DATE: 20210616
